FAERS Safety Report 9988292 (Version 2)
Quarter: 2014Q1

REPORT INFORMATION
  Report Type: Report from Study
  Country: CN (occurrence: CN)
  Receive Date: 20140310
  Receipt Date: 20140310
  Transmission Date: 20141002
  Serious: Yes (Life-Threatening)
  Sender: FDA-Public Use
  Company Number: CN-ROCHE-1300100

PATIENT
  Age: 60 Year
  Sex: Female
  Weight: 37 kg

DRUGS (2)
  1. AVASTIN [Suspect]
     Indication: COLON CANCER
     Route: 042
     Dates: start: 20130809, end: 201311
  2. OXALIPLATIN [Concomitant]
     Indication: COLON CANCER

REACTIONS (5)
  - Hypersensitivity [Not Recovered/Not Resolved]
  - Metastasis [Not Recovered/Not Resolved]
  - Dermatitis allergic [Unknown]
  - Upper respiratory tract congestion [Unknown]
  - Pharyngeal haematoma [Unknown]
